FAERS Safety Report 4883086-X (Version None)
Quarter: 2006Q1

REPORT INFORMATION
  Report Type: 
  Country: None (occurrence: None)
  Receive Date: 20060113
  Receipt Date: 20051212
  Transmission Date: 20060701
  Serious: Yes (Disabling)
  Sender: FDA-Public Use
  Company Number: GBS051018661

PATIENT
  Age: 43 Year
  Sex: Female

DRUGS (3)
  1. FLUOXETINE [Suspect]
     Indication: ANXIETY
     Dosage: UNK, ORAL
     Route: 048
  2. FLUPENTIXOL (FLUPENTIXOL) [Concomitant]
  3. FERROUS SULPHATE (FERROUS SULPHATE) [Concomitant]

REACTIONS (1)
  - CORNEAL DEPOSITS [None]
